FAERS Safety Report 19194191 (Version 2)
Quarter: 2021Q2

REPORT INFORMATION
  Report Type: Report from Study
  Country: CA (occurrence: CA)
  Receive Date: 20210429
  Receipt Date: 20210507
  Transmission Date: 20210717
  Serious: Yes (Death, Hospitalization, Other)
  Sender: FDA-Public Use
  Company Number: CA-SA-2021SA130147

PATIENT
  Age: 36 Year
  Sex: Female

DRUGS (25)
  1. TORADOL [Concomitant]
     Active Substance: KETOROLAC TROMETHAMINE
  2. ALEMTUZUMAB [Suspect]
     Active Substance: ALEMTUZUMAB
     Indication: RELAPSING-REMITTING MULTIPLE SCLEROSIS
     Dosage: 12 MG, QD
     Route: 041
     Dates: start: 20210414, end: 20210415
  3. DULOXETINE. [Concomitant]
     Active Substance: DULOXETINE
  4. ZOMIG [Concomitant]
     Active Substance: ZOLMITRIPTAN
  5. SUBOXONE [Concomitant]
     Active Substance: BUPRENORPHINE HYDROCHLORIDE\NALOXONE HYDROCHLORIDE
  6. TORADOL [Concomitant]
     Active Substance: KETOROLAC TROMETHAMINE
  7. TECTA [Concomitant]
     Active Substance: PANTOPRAZOLE MAGNESIUM
  8. GABAPENTIN. [Concomitant]
     Active Substance: GABAPENTIN
     Dosage: UNK
  9. GABAPENTIN. [Concomitant]
     Active Substance: GABAPENTIN
  10. VITAMIN D NOS [Concomitant]
     Active Substance: VITAMIN D NOS
     Dosage: UNK
  11. NORTRIPTYLINE [Concomitant]
     Active Substance: NORTRIPTYLINE
     Dosage: UNK
  12. PROPRANOLOL [Concomitant]
     Active Substance: PROPRANOLOL HYDROCHLORIDE
  13. ZOMIG [Concomitant]
     Active Substance: ZOLMITRIPTAN
  14. DIMENHYDRINATE. [Concomitant]
     Active Substance: DIMENHYDRINATE
  15. METHYLPREDNISOLONE. [Concomitant]
     Active Substance: METHYLPREDNISOLONE
     Dosage: UNK
  16. NORTRIPTYLINE [Concomitant]
     Active Substance: NORTRIPTYLINE
  17. PROPRANOLOL [Concomitant]
     Active Substance: PROPRANOLOL HYDROCHLORIDE
  18. SUBOXONE [Concomitant]
     Active Substance: BUPRENORPHINE HYDROCHLORIDE\NALOXONE HYDROCHLORIDE
  19. ZOMIG [Concomitant]
     Active Substance: ZOLMITRIPTAN
  20. VITAMIN D [VITAMIN D NOS] [Concomitant]
     Active Substance: VITAMIN D NOS
     Dosage: 50MILLIGRAM
  21. METHYLPREDNISOLONE. [Concomitant]
     Active Substance: METHYLPREDNISOLONE
     Dosage: 1000 MG
  22. VITAMIN D NOS [Concomitant]
     Active Substance: VITAMIN D NOS
  23. DULOXETINE. [Concomitant]
     Active Substance: DULOXETINE
  24. PROPOFOL. [Concomitant]
     Active Substance: PROPOFOL
  25. DIMENHYDRINATE. [Concomitant]
     Active Substance: DIMENHYDRINATE
     Dosage: 50 MG

REACTIONS (23)
  - Unresponsive to stimuli [Fatal]
  - Hypersensitivity [Fatal]
  - Dyspnoea [Unknown]
  - Fear [Unknown]
  - Pruritus [Recovered/Resolved]
  - Eye swelling [Recovered/Resolved]
  - Incorrect dose administered [Unknown]
  - Brain death [Fatal]
  - Cardiac arrest [Fatal]
  - Musculoskeletal stiffness [Recovered/Resolved]
  - Eye pruritus [Recovered/Resolved]
  - Respiratory rate decreased [Unknown]
  - Pneumonia [Not Recovered/Not Resolved]
  - Heart rate decreased [Unknown]
  - Ocular hyperaemia [Recovered/Resolved]
  - Wheezing [Recovered/Resolved]
  - Hypoaesthesia [Unknown]
  - Cyanosis [Unknown]
  - Pallor [Unknown]
  - Pain [Unknown]
  - Seizure [Fatal]
  - Gait disturbance [Unknown]
  - Rash [Recovered/Resolved]

NARRATIVE: CASE EVENT DATE: 202104
